FAERS Safety Report 10083326 (Version 2)
Quarter: 2014Q2

REPORT INFORMATION
  Report Type: Spontaneous
  Country: GB (occurrence: GB)
  Receive Date: 20140417
  Receipt Date: 20140508
  Transmission Date: 20141212
  Serious: Yes (Death)
  Sender: FDA-Public Use
  Company Number: GB-RANBAXY-2014RR-80360

PATIENT
  Sex: 0

DRUGS (4)
  1. FLUOXETINE [Suspect]
     Indication: ANXIETY
     Dosage: 20 MG, UNK
     Route: 048
     Dates: start: 20121130, end: 20130203
  2. DIANETTE [Concomitant]
     Indication: POLYCYSTIC OVARIES
     Dosage: UNK
     Route: 048
     Dates: start: 20120202, end: 20121130
  3. GEDAREL [Concomitant]
     Indication: PRODUCT USED FOR UNKNOWN INDICATION
     Dosage: UNK
     Route: 065
  4. PROPRANOLOL HYDROCHLORIDE [Concomitant]
     Indication: ANXIETY
     Dosage: UNK
     Route: 065

REACTIONS (4)
  - Completed suicide [Fatal]
  - Mydriasis [Not Recovered/Not Resolved]
  - Intentional overdose [Not Recovered/Not Resolved]
  - Personality change [Unknown]
